FAERS Safety Report 15340906 (Version 3)
Quarter: 2020Q4

REPORT INFORMATION
  Report Type: Spontaneous
  Country: US (occurrence: US)
  Receive Date: 20180831
  Receipt Date: 20201106
  Transmission Date: 20210113
  Serious: No
  Sender: FDA-Public Use
  Company Number: US-SA-2018SA242893

PATIENT

DRUGS (1)
  1. DUPIXENT [Suspect]
     Active Substance: DUPILUMAB
     Indication: DERMATITIS ATOPIC
     Dosage: 300 MG, QOW
     Route: 058
     Dates: start: 20180521

REACTIONS (5)
  - Inappropriate schedule of product administration [Unknown]
  - Ocular hyperaemia [Unknown]
  - Therapeutic product effect decreased [Unknown]
  - Erythema [Unknown]
  - Eye swelling [Unknown]

NARRATIVE: CASE EVENT DATE: 2018
